FAERS Safety Report 4900680-8 (Version None)
Quarter: 2005Q4

REPORT INFORMATION
  Report Type: 
  Country: None (occurrence: None)
  Receive Date: 20051221
  Receipt Date: 20050928
  Transmission Date: 20060501
  Serious: No
  Sender: FDA-Public Use
  Company Number: US-YAMANOUCHI-YPA20050525

PATIENT
  Age: 86 Year
  Sex: Female

DRUGS (4)
  1. VESICARE [Suspect]
     Indication: BLADDER DISORDER
     Dosage: 5 MG BED_TIME PO
     Route: 048
     Dates: start: 20050926
  2. ZETIA [Concomitant]
  3. ATENOLOL [Concomitant]
  4. VITAMINS [Concomitant]

REACTIONS (1)
  - DIZZINESS [None]
